FAERS Safety Report 7342579-6 (Version None)
Quarter: 2011Q1

REPORT INFORMATION
  Report Type: 
  Country: None (occurrence: None)
  Receive Date: 20110310
  Receipt Date: 20110223
  Transmission Date: 20110831
  Serious: Yes (Hospitalization)
  Sender: FDA-Public Use
  Company Number: DE-BAYER-2010-007110

PATIENT
  Sex: Female
  Weight: 55 kg

DRUGS (1)
  1. QLAIRA FILMTABLETTEN [Suspect]
     Indication: CONTRACEPTION
     Dosage: UNK
     Dates: start: 20100501, end: 20101202

REACTIONS (1)
  - ECTOPIC PREGNANCY [None]
